FAERS Safety Report 12982060 (Version 2)
Quarter: 2016Q4

REPORT INFORMATION
  Report Type: Spontaneous
  Country: IT (occurrence: IT)
  Receive Date: 20161129
  Receipt Date: 20161202
  Transmission Date: 20170207
  Serious: Yes (Other)
  Sender: FDA-Public Use
  Company Number: IT-SA-2016SA212576

PATIENT
  Age: 36 Year
  Sex: Female
  Weight: 56 kg

DRUGS (3)
  1. OXALIPLATIN. [Suspect]
     Active Substance: OXALIPLATIN
     Indication: COLON CANCER
     Route: 042
     Dates: start: 20160825, end: 20160825
  2. FLUOROURACIL. [Concomitant]
     Active Substance: FLUOROURACIL
     Route: 042
  3. OXALIPLATIN. [Suspect]
     Active Substance: OXALIPLATIN
     Indication: COLON CANCER
     Route: 042
     Dates: start: 20161028, end: 20161028

REACTIONS (1)
  - Ileus paralytic [Recovered/Resolved]

NARRATIVE: CASE EVENT DATE: 20161028
